FAERS Safety Report 4336986-3 (Version None)
Quarter: 2004Q1

REPORT INFORMATION
  Report Type: 
  Country: None (occurrence: None)
  Receive Date: 20040329
  Receipt Date: 20040205
  Transmission Date: 20041129
  Serious: No
  Sender: FDA-Public Use
  Company Number: USA040258636

PATIENT
  Age: 10 Year
  Sex: Male
  Weight: 27 kg

DRUGS (3)
  1. STRATTERA [Suspect]
     Dosage: 25 MG/IN THE MORNING
     Dates: start: 20040131
  2. SINGULAIR [Concomitant]
  3. CONCERTA [Concomitant]

REACTIONS (4)
  - ABNORMAL BEHAVIOUR [None]
  - NAUSEA [None]
  - PSYCHOMOTOR HYPERACTIVITY [None]
  - VOMITING [None]
